FAERS Safety Report 23779862 (Version 3)
Quarter: 2024Q2

REPORT INFORMATION
  Report Type: Spontaneous
  Country: US (occurrence: US)
  Receive Date: 20240424
  Receipt Date: 20240604
  Transmission Date: 20240716
  Serious: No
  Sender: FDA-Public Use
  Company Number: US-SANDOZ-SDZ2024US041532

PATIENT
  Sex: Female
  Weight: 74.104 kg

DRUGS (2)
  1. COMBIPATCH [Suspect]
     Active Substance: ESTRADIOL\NORETHINDRONE ACETATE
     Indication: Menopause
     Dosage: 0.05/0.25 MG
     Route: 062
  2. COMBIPATCH [Suspect]
     Active Substance: ESTRADIOL\NORETHINDRONE ACETATE
     Dosage: UNK; 0.05/0.25 MG
     Route: 062
     Dates: start: 2023

REACTIONS (4)
  - Weight increased [Unknown]
  - Device issue [Recovered/Resolved]
  - Product storage error [Recovered/Resolved]
  - Product dose omission issue [Not Recovered/Not Resolved]
